FAERS Safety Report 4840825-1 (Version None)
Quarter: 2005Q4

REPORT INFORMATION
  Report Type: 
  Country: None (occurrence: None)
  Receive Date: 20051130
  Receipt Date: 20050509
  Transmission Date: 20060501
  Serious: No
  Sender: FDA-Public Use
  Company Number: US-BRISTOL-MYERS SQUIBB COMPANY-12963443

PATIENT
  Age: 66 Year
  Sex: Female

DRUGS (1)
  1. AVALIDE [Suspect]
     Indication: HYPERTENSION
     Dosage: ONE-HALF OF A 150/12.5MG TABLET DAILY
     Route: 048
     Dates: start: 20040313

REACTIONS (1)
  - PHOTOSENSITIVITY REACTION [None]
